FAERS Safety Report 21403763 (Version 10)
Quarter: 2023Q4

REPORT INFORMATION
  Report Type: Spontaneous
  Country: IN (occurrence: IN)
  Receive Date: 20221003
  Receipt Date: 20231020
  Transmission Date: 20240110
  Serious: Yes (Death, Other)
  Sender: FDA-Public Use
  Company Number: IN-PFIZER INC-2021238694

PATIENT
  Age: 72 Year
  Sex: Female
  Weight: 57.1 kg

DRUGS (6)
  1. PALBOCICLIB [Suspect]
     Active Substance: PALBOCICLIB
     Indication: Breast cancer metastatic
     Dosage: 125 MG, ONCE DAILY FOR 21 DAYS AND THEN 7 DAYS OFF
     Route: 048
     Dates: start: 20201127
  2. PALBOCICLIB [Suspect]
     Active Substance: PALBOCICLIB
     Dosage: UNK
     Dates: start: 20230526, end: 20230722
  3. LETROZOLE [Concomitant]
     Active Substance: LETROZOLE
     Dosage: 2.5 MG, 1X/DAY FOR 1 YEAR
     Dates: end: 20230526
  4. CALCIUM CARBONATE [Concomitant]
     Active Substance: CALCIUM CARBONATE
     Dosage: 1 GM DAILY FOR 1 YEAR
  5. FULVESTRANT [Concomitant]
     Active Substance: FULVESTRANT
     Dosage: 28 DAYS CYCLE FOR 3 MONTHS (FIRST MONTH ADDITIONAL DOSE ON DAY 14)
  6. FULVESTRANT [Concomitant]
     Active Substance: FULVESTRANT
     Dosage: UNK
     Dates: start: 20230526, end: 20230722

REACTIONS (6)
  - Neoplasm progression [Fatal]
  - Diabetes mellitus [Unknown]
  - Arthralgia [Unknown]
  - Weight decreased [Unknown]
  - Weight increased [Unknown]
  - Hepatic lesion [Unknown]

NARRATIVE: CASE EVENT DATE: 20220928
